FAERS Safety Report 7759619-2 (Version None)
Quarter: 2011Q3

REPORT INFORMATION
  Report Type: 
  Country: None (occurrence: None)
  Receive Date: 20110919
  Receipt Date: 20110913
  Transmission Date: 20111222
  Serious: Yes (Hospitalization)
  Sender: FDA-Public Use
  Company Number: US-ROCHE-802539

PATIENT
  Sex: Female

DRUGS (2)
  1. BEVACIZUMAB [Suspect]
     Route: 065
     Dates: start: 20110614
  2. TRASTUZUMAB [Suspect]
     Route: 065
     Dates: start: 20110620

REACTIONS (1)
  - PNEUMOTHORAX [None]
